FAERS Safety Report 21958144 (Version 5)
Quarter: 2023Q4

REPORT INFORMATION
  Report Type: Spontaneous
  Country: US (occurrence: US)
  Receive Date: 20230206
  Receipt Date: 20231227
  Transmission Date: 20240110
  Serious: No
  Sender: FDA-Public Use
  Company Number: US-PFIZER INC-202300049983

PATIENT
  Age: 73 Year
  Sex: Female
  Weight: 59.87 kg

DRUGS (15)
  1. XELJANZ XR [Suspect]
     Active Substance: TOFACITINIB CITRATE
     Indication: Rheumatoid arthritis
     Dosage: 11 MG, 1X/DAY
     Route: 048
     Dates: start: 20190101, end: 20230224
  2. XELJANZ XR [Suspect]
     Active Substance: TOFACITINIB CITRATE
     Dosage: 11 MG, 1X/DAY
     Route: 048
     Dates: start: 20230325, end: 2023
  3. XELJANZ XR [Suspect]
     Active Substance: TOFACITINIB CITRATE
     Dosage: 11 MG, 1X/DAY
     Dates: start: 202007
  4. ADVIL [Concomitant]
     Active Substance: IBUPROFEN
     Dosage: 200 MG (ONLY OCCASIONAL)
  5. BIOTIN [Concomitant]
     Active Substance: BIOTIN
     Dosage: 10 MG (MORE THAN 10 YEARS)
  6. FEXOFENADINE HYDROCHLORIDE [Concomitant]
     Active Substance: FEXOFENADINE HYDROCHLORIDE
     Dosage: 180 MG (ONLY OCCASIONAL)
  7. TUMS [Concomitant]
     Active Substance: CALCIUM CARBONATE
     Dosage: 200 MG (MORE THAN 20 YEARS)
  8. TYLENOL [Concomitant]
     Active Substance: ACETAMINOPHEN
     Dosage: 325 MG, AS NEEDED
  9. VITAMIN D3 [Concomitant]
     Active Substance: CHOLECALCIFEROL
     Dosage: 25 UG (TAKEN MORE THAN 10 YEARS)
  10. ALENDRONATE SODIUM [Concomitant]
     Active Substance: ALENDRONATE SODIUM
     Dosage: 70 MG (2 YEARS)
  11. SYNTHROID [Concomitant]
     Active Substance: LEVOTHYROXINE SODIUM
     Dosage: 75 UG (MORE THAN 15 YEARS)
  12. METHOTREXATE [Concomitant]
     Active Substance: METHOTREXATE
     Indication: Inflammation
     Dosage: 2.5 MG (ABOUT 10 YEARS)
  13. FOLIC ACID [Concomitant]
     Active Substance: FOLIC ACID
     Dosage: 1 MG (ABOUT 10 YEARS)
  14. ATORVASTATIN CALCIUM [Concomitant]
     Active Substance: ATORVASTATIN CALCIUM
     Dosage: 10 MG (ABOUT 1 AND 1/2 YEARS)
  15. ESTRING [Concomitant]
     Active Substance: ESTRADIOL
     Dosage: 7.5 UG (ABOUT 10 YEARS)

REACTIONS (8)
  - Blood cholesterol increased [Recovered/Resolved]
  - COVID-19 [Recovered/Resolved]
  - Nasopharyngitis [Recovered/Resolved]
  - Dizziness [Recovered/Resolved]
  - Erythema migrans [Recovered/Resolved]
  - Onychomycosis [Not Recovered/Not Resolved]
  - Decreased appetite [Recovered/Resolved]
  - Condition aggravated [Not Recovered/Not Resolved]

NARRATIVE: CASE EVENT DATE: 20200701
